FAERS Safety Report 4657446-6 (Version None)
Quarter: 2005Q2

REPORT INFORMATION
  Report Type: 
  Country: None (occurrence: None)
  Receive Date: 20050506
  Receipt Date: 20050429
  Transmission Date: 20051028
  Serious: Yes (Life-Threatening)
  Sender: FDA-Public Use
  Company Number: 05H-163-0298320-00

PATIENT
  Age: 77 Year
  Sex: Female

DRUGS (10)
  1. DEXTRAN 40 10% IN SODIUM CHLORIDE 0.9% [Suspect]
     Indication: COAGULOPATHY
     Dosage: 50 CC, PER HOUR, INTRAVENOUS
     Route: 042
     Dates: start: 20050411, end: 20050411
  2. DEXTRAN 40 10% IN SODIUM CHLORIDE 0.9% [Suspect]
  3. ALPRAZOLAM [Concomitant]
  4. AMIODARONE HCL [Concomitant]
  5. NADOLOL [Concomitant]
  6. POTASSIUM CHLORIDE [Concomitant]
  7. FUROSEMIDE [Concomitant]
  8. LISINOPRIL [Concomitant]
  9. NICOTINIC ACID [Concomitant]
  10. ESTROGENS CONJUGATED [Concomitant]

REACTIONS (6)
  - CHEST PAIN [None]
  - CORONARY ARTERY DISEASE [None]
  - DYSPNOEA [None]
  - FLUSHING [None]
  - NAUSEA [None]
  - REFUSAL OF TREATMENT BY PATIENT [None]
